FAERS Safety Report 9546618 (Version 2)
Quarter: 2013Q3

REPORT INFORMATION
  Report Type: Spontaneous
  Country: US (occurrence: US)
  Receive Date: 20130924
  Receipt Date: 20130924
  Transmission Date: 20140515
  Serious: Yes (Hospitalization)
  Sender: FDA-Public Use
  Company Number: US-AMGEN-USASP2013056433

PATIENT
  Age: 71 Year
  Sex: Female
  Weight: 72.56 kg

DRUGS (6)
  1. MULTAQ [Concomitant]
     Dosage: 400 MG, BID
     Route: 048
  2. ZOCOR [Concomitant]
     Indication: LIPIDS
     Dosage: 20 MG, QD
     Route: 048
  3. HUMALOG [Concomitant]
     Dosage: INSULIN PUMP
     Route: 058
  4. SYNTHYROID [Concomitant]
     Dosage: 125 MUG, QD
     Route: 048
  5. TOPROL [Concomitant]
     Dosage: 50 MG, QD
     Route: 048
  6. PROLIA [Suspect]
     Indication: OSTEOPOROSIS
     Dosage: 60 MG, X1
     Route: 058
     Dates: start: 20110225, end: 20110225

REACTIONS (5)
  - Radiation skin injury [Recovering/Resolving]
  - Pseudomonas infection [Recovering/Resolving]
  - Localised infection [Recovering/Resolving]
  - Atrial fibrillation [Recovered/Resolved]
  - Rash [Recovered/Resolved]
